FAERS Safety Report 14678704 (Version 1)
Quarter: 2018Q1

REPORT INFORMATION
  Report Type: Spontaneous
  Country: US (occurrence: US)
  Receive Date: 20180326
  Receipt Date: 20180326
  Transmission Date: 20180509
  Serious: Yes (Death)
  Sender: FDA-Public Use
  Company Number: US-CLINIGEN GROUP PLC/ CLINIGEN HEALTHCARE LTD-US-CLGN-18-00121

PATIENT
  Age: 22 Year
  Sex: Male

DRUGS (14)
  1. FOSCARNET SODIUM. [Suspect]
     Active Substance: FOSCARNET SODIUM
     Indication: HUMAN HERPESVIRUS 6 INFECTION
  2. METHOTREXATE. [Concomitant]
     Active Substance: METHOTREXATE
     Indication: PROPHYLAXIS AGAINST GRAFT VERSUS HOST DISEASE
  3. MYCOPHENOLATE [Concomitant]
     Active Substance: MYCOPHENOLIC ACID
     Indication: GRAFT VERSUS HOST DISEASE
  4. TRIMETHOPRIM-SULFAMETHOXAZOLE [Concomitant]
     Active Substance: SULFAMETHOXAZOLE\TRIMETHOPRIM
     Indication: PRODUCT USED FOR UNKNOWN INDICATION
  5. TACROLIMUS. [Concomitant]
     Active Substance: TACROLIMUS
     Indication: GRAFT VERSUS HOST DISEASE
  6. LEVETIRACETAM. [Concomitant]
     Active Substance: LEVETIRACETAM
     Indication: SEIZURE
  7. GANCICLOVIR. [Suspect]
     Active Substance: GANCICLOVIR
     Indication: HUMAN HERPESVIRUS 6 INFECTION
  8. TACROLIMUS. [Concomitant]
     Active Substance: TACROLIMUS
     Indication: PROPHYLAXIS AGAINST GRAFT VERSUS HOST DISEASE
  9. ACYCLOVIR. [Concomitant]
     Active Substance: ACYCLOVIR
     Indication: ANTIVIRAL PROPHYLAXIS
  10. CYCLOPHOSPHAMIDE. [Concomitant]
     Active Substance: CYCLOPHOSPHAMIDE
     Indication: BONE MARROW CONDITIONING REGIMEN
  11. SIROLIMUS. [Concomitant]
     Active Substance: SIROLIMUS
     Indication: GRAFT VERSUS HOST DISEASE
  12. FOSCARNET SODIUM. [Suspect]
     Active Substance: FOSCARNET SODIUM
     Indication: LIMBIC ENCEPHALITIS
  13. GANCICLOVIR. [Suspect]
     Active Substance: GANCICLOVIR
     Indication: LIMBIC ENCEPHALITIS
  14. SIROLIMUS. [Concomitant]
     Active Substance: SIROLIMUS
     Indication: PROPHYLAXIS AGAINST GRAFT VERSUS HOST DISEASE

REACTIONS (3)
  - Septic shock [Fatal]
  - Off label use [Unknown]
  - Acinetobacter bacteraemia [Fatal]
